FAERS Safety Report 23812870 (Version 1)
Quarter: 2024Q2

REPORT INFORMATION
  Report Type: Spontaneous
  Country: US (occurrence: US)
  Receive Date: 20240503
  Receipt Date: 20240503
  Transmission Date: 20240716
  Serious: No
  Sender: FDA-Public Use
  Company Number: US-ABBVIE-5735841

PATIENT
  Age: 69 Year
  Sex: Male

DRUGS (2)
  1. DUOPA [Suspect]
     Active Substance: CARBIDOPA\LEVODOPA
     Indication: Parkinson^s disease
     Route: 050
     Dates: end: 2024
  2. DUOPA [Suspect]
     Active Substance: CARBIDOPA\LEVODOPA
     Dosage: THE DOSE WAS INCREASED TO 24/7 USING TWO CASSETTES
     Route: 050
     Dates: start: 2024

REACTIONS (6)
  - On and off phenomenon [Unknown]
  - Thinking abnormal [Unknown]
  - Movement disorder [Unknown]
  - Unevaluable event [Unknown]
  - Aphasia [Unknown]
  - Device occlusion [Not Recovered/Not Resolved]

NARRATIVE: CASE EVENT DATE: 20240201
